FAERS Safety Report 10907075 (Version 1)
Quarter: 2015Q1

REPORT INFORMATION
  Report Type: Spontaneous
  Country: US (occurrence: None)
  Receive Date: 20150309
  Receipt Date: 20150309
  Transmission Date: 20150721
  Serious: Yes (Other)
  Sender: FDA-Public Use
  Company Number: 2015JUB00056

PATIENT
  Age: 24 Year
  Sex: Male

DRUGS (6)
  1. FENTANYL. [Concomitant]
     Active Substance: FENTANYL
  2. AZITHROMYCIN [Concomitant]
     Active Substance: AZITHROMYCIN ANHYDROUS
  3. PROPOFOL (PROPOFOL) [Suspect]
     Active Substance: PROPOFOL
  4. ENOXAPARIN [Concomitant]
     Active Substance: ENOXAPARIN
  5. METHYLPREDNISOLONE. [Suspect]
     Active Substance: METHYLPREDNISOLONE
  6. BRONCHODILATORS [Concomitant]
     Active Substance: UNSPECIFIED INGREDIENT

REACTIONS (10)
  - Urine cannabinoids increased [None]
  - Blood triglycerides increased [None]
  - Metabolic acidosis [None]
  - Blood creatine phosphokinase increased [None]
  - White blood cell count increased [None]
  - Renal impairment [None]
  - Drug interaction [None]
  - Blood potassium increased [None]
  - Chromaturia [None]
  - Propofol infusion syndrome [None]
